FAERS Safety Report 6930183-0 (Version None)
Quarter: 2010Q3

REPORT INFORMATION
  Report Type: 
  Country: None (occurrence: None)
  Receive Date: 20100818
  Receipt Date: 20100809
  Transmission Date: 20110219
  Serious: Yes (Other)
  Sender: FDA-Public Use
  Company Number: US-PFIZER INC-2010077482

PATIENT
  Sex: Female
  Weight: 63.4 kg

DRUGS (5)
  1. FLAGYL [Suspect]
     Indication: CLOSTRIDIUM DIFFICILE COLITIS
     Dosage: 500 MG, 3X/DAY
     Route: 048
     Dates: start: 20090201, end: 20090101
  2. LEXAPRO [Concomitant]
     Dosage: UNK
     Route: 048
  3. WARFARIN SODIUM [Concomitant]
     Dosage: UNK
     Route: 048
  4. LASIX [Concomitant]
     Dosage: UNK
     Route: 048
  5. COREG [Concomitant]
     Dosage: UNK
     Route: 048

REACTIONS (1)
  - NEUROPATHY PERIPHERAL [None]
